FAERS Safety Report 9580571 (Version 1)
Quarter: 2013Q3

REPORT INFORMATION
  Report Type: Spontaneous
  Country: US (occurrence: None)
  Receive Date: 20130916
  Receipt Date: 20130916
  Transmission Date: 20140515
  Serious: Yes (Other)
  Sender: FDA-Public Use
  Company Number: JPI-P-033361

PATIENT
  Age: 49 Year
  Sex: Male

DRUGS (1)
  1. XYREM [Suspect]
     Indication: NARCOLEPSY
     Route: 048
     Dates: start: 20080905

REACTIONS (5)
  - Sleep apnoea syndrome [None]
  - Snoring [None]
  - Hypotonia [None]
  - Feeling abnormal [None]
  - Drug dose omission [None]
